FAERS Safety Report 6145762-0 (Version None)
Quarter: 2009Q2

REPORT INFORMATION
  Report Type: 
  Country: None (occurrence: None)
  Receive Date: 20090406
  Receipt Date: 20090406
  Transmission Date: 20091009
  Serious: No
  Sender: FDA-Public Use
  Company Number: None

PATIENT
  Age: 74 Year
  Sex: Female
  Weight: 58.0604 kg

DRUGS (1)
  1. FOSAMAX [Suspect]
     Indication: BONE DISORDER
     Dosage: 1 TABLET WKLY
     Dates: start: 20090205

REACTIONS (13)
  - APHONIA [None]
  - ENDODONTIC PROCEDURE [None]
  - FACIAL PAIN [None]
  - HEADACHE [None]
  - INFECTION [None]
  - INFLUENZA [None]
  - MALAISE [None]
  - NASOPHARYNGITIS [None]
  - PAIN [None]
  - PAIN IN JAW [None]
  - SWELLING FACE [None]
  - TOOTH DISORDER [None]
  - TOOTH INFECTION [None]
